FAERS Safety Report 26131477 (Version 1)
Quarter: 2025Q4

REPORT INFORMATION
  Report Type: Report from Study
  Country: CA (occurrence: CA)
  Receive Date: 20251208
  Receipt Date: 20251208
  Transmission Date: 20260117
  Serious: Yes (Other)
  Sender: ABBVIE
  Company Number: CA-ABBVIE-6577163

PATIENT
  Sex: Male

DRUGS (1)
  1. SKYRIZI [Suspect]
     Active Substance: RISANKIZUMAB-RZAA
     Indication: Psoriasis
     Dosage: FORM STRENGTH 150MG/ML, INJECT THE CONTENTS OF ONE PEN SUBCUTANEOUSLY ?EVERY 8 WEEKS
     Route: 058

REACTIONS (3)
  - Metastatic neoplasm [Not Recovered/Not Resolved]
  - Mental fatigue [Not Recovered/Not Resolved]
  - Fatigue [Not Recovered/Not Resolved]
